FAERS Safety Report 8321914-6 (Version None)
Quarter: 2012Q2

REPORT INFORMATION
  Report Type: 
  Country: None (occurrence: None)
  Receive Date: 20120430
  Receipt Date: 20120424
  Transmission Date: 20120825
  Serious: Yes (Death, Hospitalization, Other)
  Sender: FDA-Public Use
  Company Number: AT-SANOFI-AVENTIS-2012SA024785

PATIENT
  Age: 58 Year
  Sex: Male
  Weight: 60 kg

DRUGS (17)
  1. IRINOTECAN HCL [Suspect]
     Indication: METASTATIC GASTRIC CANCER
     Route: 042
     Dates: start: 20120105, end: 20120228
  2. MEXALEN [Concomitant]
     Dates: start: 20120103, end: 20120408
  3. GRANISETRON [Concomitant]
     Dates: start: 20120201, end: 20120408
  4. AUGMENTIN [Concomitant]
     Dates: start: 20120403, end: 20120408
  5. TRAMABENE [Concomitant]
     Dates: start: 20120403, end: 20120408
  6. MAGNESIUM [Concomitant]
     Dosage: FREQUENCY: ON DAY 1 + 15 OF CHEMOTHERAPY CYCLE
     Dates: start: 20120105, end: 20120408
  7. PANTOPRAZOLE SODIUM [Concomitant]
     Dates: start: 20090101
  8. ZOFRAN [Concomitant]
     Dates: start: 20120105, end: 20120408
  9. RULIDE [Concomitant]
     Dates: start: 20120403, end: 20120408
  10. OXALIPLATIN [Suspect]
     Indication: METASTATIC GASTRIC CANCER
     Route: 042
     Dates: start: 20120105, end: 20120228
  11. NOVALGIN [Concomitant]
     Dosage: DOSAGE: 20 DROPS
     Dates: start: 20120105, end: 20120408
  12. AVASTIN [Suspect]
     Indication: METASTATIC GASTRIC CANCER
     Route: 042
     Dates: start: 20120105, end: 20120228
  13. ATROPINE [Concomitant]
     Dosage: FREQUENCY: ON DAY 1 + 15 OF CHEMOTHERAPY CYCLE
     Dates: start: 20120105, end: 20120408
  14. PASPERTIN [Concomitant]
     Dosage: DOSAGE: 20 DROPS
     Dates: start: 20120105, end: 20120408
  15. KYTRIL [Concomitant]
     Dosage: FREQUENCY: BEFORE CHEMOTHERAPY ON DAY 1+ DAY 15
     Dates: start: 20120105, end: 20120408
  16. CALCIUM [Concomitant]
     Dosage: FREQUENCY: ON DAY 1 + DAY 15 OF CHEMOTHERAPY CYCLE
     Dates: start: 20120105, end: 20120408
  17. TRAMADOL HYDROCHLORIDE [Concomitant]
     Dates: start: 20120403, end: 20120408

REACTIONS (2)
  - PNEUMONIA [None]
  - CEREBROVASCULAR ACCIDENT [None]
